FAERS Safety Report 4407216-9 (Version None)
Quarter: 2004Q3

REPORT INFORMATION
  Report Type: 
  Country: None (occurrence: None)
  Receive Date: 20040721
  Receipt Date: 20040701
  Transmission Date: 20050211
  Serious: Yes (Hospitalization, Other)
  Sender: FDA-Public Use
  Company Number: US_010974207

PATIENT
  Age: 73 Year
  Sex: Female
  Weight: 118 kg

DRUGS (10)
  1. HUMALOG [Suspect]
     Indication: DIABETES MELLITUS
     Dosage: 50 U DAY
     Dates: start: 20010901
  2. HUMULIN N [Suspect]
     Indication: DIABETES MELLITUS
  3. HUMULIN R [Suspect]
     Indication: DIABETES MELLITUS
  4. HUMALOG [Suspect]
  5. HUMULIN R [Suspect]
     Dates: start: 20040601, end: 20040601
  6. COUMADIN [Concomitant]
  7. IMDUR [Concomitant]
  8. PROPRANOLOL [Concomitant]
  9. DIOVAN [Concomitant]
  10. HYDROCHLOROTHIAZIDE/TRIAMTERENE [Concomitant]

REACTIONS (9)
  - BLOOD GLUCOSE DECREASED [None]
  - BLOOD GLUCOSE INCREASED [None]
  - CARDIAC PACEMAKER INSERTION [None]
  - CEREBROVASCULAR ACCIDENT [None]
  - DYSPNOEA [None]
  - HYPOVENTILATION [None]
  - HYSTERECTOMY [None]
  - INJECTION SITE HAEMORRHAGE [None]
  - MASTECTOMY [None]
